FAERS Safety Report 15961952 (Version 1)
Quarter: 2019Q1

REPORT INFORMATION
  Report Type: Spontaneous
  Country: NL (occurrence: NL)
  Receive Date: 20190214
  Receipt Date: 20190214
  Transmission Date: 20190417
  Serious: Yes (Hospitalization)
  Sender: FDA-Public Use
  Company Number: NL-TEVA-2019-NL-1010642

PATIENT
  Age: 48 Year
  Sex: Female
  Weight: 66 kg

DRUGS (2)
  1. DEXAMETHASON TABLET, 4 MG (MILLIGRAM) [Suspect]
     Active Substance: DEXAMETHASONE
     Indication: ANTIEMETIC SUPPORTIVE CARE
     Dosage: DURING CHEMO, FIRST DAY 12 MG THEN 3 DAYS 1 X DAILY 8 MG
     Dates: start: 20190104, end: 20190107
  2. DEXAMETHASON TABLET, 4 MG (MILLIGRAM) [Suspect]
     Active Substance: DEXAMETHASONE
     Dosage: DURING CHEMO, FIRST DAY 12 MG THEN 3 DAYS 1 X DAILY 8 MG
     Dates: start: 20190103, end: 20190107

REACTIONS (2)
  - Anxiety [Recovered/Resolved]
  - Panic reaction [Recovered/Resolved]

NARRATIVE: CASE EVENT DATE: 20190105
